FAERS Safety Report 4454995-0 (Version None)
Quarter: 2004Q3

REPORT INFORMATION
  Report Type: 
  Country: None (occurrence: None)
  Receive Date: 20040824
  Receipt Date: 20040608
  Transmission Date: 20050211
  Serious: No
  Sender: FDA-Public Use
  Company Number: SU-2004-002442

PATIENT
  Age: 61 Year
  Sex: Male
  Weight: 99.7913 kg

DRUGS (9)
  1. BENICAR [Suspect]
     Indication: HYPERTENSION
     Dosage: 40 MG QD PO
     Route: 048
     Dates: start: 20040508
  2. VIAGRA [Suspect]
  3. TENORMIN [Concomitant]
  4. TORSEMIDE [Concomitant]
  5. LAMICTAL [Concomitant]
  6. WELLBUTRIN [Concomitant]
  7. LEXAPRO [Concomitant]
  8. XANAX [Concomitant]
  9. WARFARIN SODIUM [Concomitant]

REACTIONS (3)
  - BLOOD PRESSURE DECREASED [None]
  - DRUG INTERACTION [None]
  - SOMNOLENCE [None]
